FAERS Safety Report 22174348 (Version 11)
Quarter: 2025Q2

REPORT INFORMATION
  Report Type: Spontaneous
  Country: US (occurrence: US)
  Receive Date: 20230405
  Receipt Date: 20250624
  Transmission Date: 20250716
  Serious: Yes (Hospitalization, Other)
  Sender: AMNEAL
  Company Number: US-AMNEAL PHARMACEUTICALS-2023-AMRX-01042

PATIENT

DRUGS (12)
  1. VIGABATRIN [Suspect]
     Active Substance: VIGABATRIN
     Indication: Epilepsy
     Dosage: 20 MILLILITER, BID (MIX 2 PACKETS IN 20 ML OF WATER AND GIVE/TAKE 20 ML (1000 MG) TWICE DAILY)
     Route: 048
     Dates: start: 2018
  2. VIGABATRIN [Suspect]
     Active Substance: VIGABATRIN
     Indication: Illness
     Dosage: 20 MILLILITER, BID, DOSAGE 2000 MG/DAY
     Route: 048
  3. VIGABATRIN [Suspect]
     Active Substance: VIGABATRIN
     Indication: Atelectasis
     Dosage: (2 PACKETS), 1000 MILLIGRAM, BID
     Route: 065
  4. VIGABATRIN [Suspect]
     Active Substance: VIGABATRIN
     Indication: Partial seizures
     Dosage: 20 ML BY MOUTH TWICE A DAY
     Route: 048
  5. VIGABATRIN [Suspect]
     Active Substance: VIGABATRIN
     Indication: Focal dyscognitive seizures
     Dosage: 1000 MG (02 PACKETS) TWICE DAILY
     Route: 048
  6. VIGABATRIN [Suspect]
     Active Substance: VIGABATRIN
     Indication: Cystic fibrosis carrier
  7. VIGABATRIN [Suspect]
     Active Substance: VIGABATRIN
     Indication: Lung disorder
  8. PULMOZYME [Concomitant]
     Active Substance: DORNASE ALFA
     Indication: Product used for unknown indication
     Dosage: 2.5 MILLIGRAM, QD
  9. VITAMINS [Concomitant]
     Active Substance: VITAMINS
     Indication: Product used for unknown indication
     Route: 065
  10. ALBUTEROL SULFATE [Concomitant]
     Active Substance: ALBUTEROL SULFATE
     Indication: Product used for unknown indication
     Route: 065
  11. SODIUM CHLORIDE [Concomitant]
     Active Substance: SODIUM CHLORIDE
     Indication: Product used for unknown indication
  12. SODIUM FLUORIDE [Concomitant]
     Active Substance: SODIUM FLUORIDE
     Indication: Product used for unknown indication
     Route: 065

REACTIONS (17)
  - Hospitalisation [Unknown]
  - Respiratory syncytial virus infection [Unknown]
  - Rhinovirus infection [Unknown]
  - Adverse event [Unknown]
  - Unevaluable event [Unknown]
  - Pneumonia aspiration [Recovered/Resolved]
  - Pneumothorax [Recovered/Resolved]
  - Dysphonia [Unknown]
  - Cough [Unknown]
  - Seizure [Unknown]
  - Pneumonia [Unknown]
  - Infection [Unknown]
  - Coronavirus infection [Unknown]
  - Stress [Unknown]
  - Sinusitis [Unknown]
  - Product dose omission issue [Unknown]
  - Treatment noncompliance [Unknown]

NARRATIVE: CASE EVENT DATE: 20231111
